FAERS Safety Report 11113715 (Version 4)
Quarter: 2015Q4

REPORT INFORMATION
  Report Type: Spontaneous
  Country: US (occurrence: US)
  Receive Date: 20150514
  Receipt Date: 20151027
  Transmission Date: 20160304
  Serious: Yes (Hospitalization, Disabling, Other)
  Sender: FDA-Public Use
  Company Number: US-009507513-1203USA01853

PATIENT
  Sex: Female
  Weight: 71.66 kg

DRUGS (3)
  1. FOSAMAX [Suspect]
     Active Substance: ALENDRONATE SODIUM
     Indication: OSTEOPENIA
     Dosage: 10 MG, UNKNOWN
     Route: 048
     Dates: start: 1998, end: 2001
  2. FOSAMAX [Suspect]
     Active Substance: ALENDRONATE SODIUM
     Indication: OSTEOPOROSIS
     Dosage: 70 MG, QW
     Route: 048
     Dates: start: 20070910
  3. ALENDRONATE SODIUM. [Suspect]
     Active Substance: ALENDRONATE SODIUM
     Indication: OSTEOPENIA
     Dosage: 70 MG, UNKNOWN
     Route: 048
     Dates: start: 2008, end: 201108

REACTIONS (56)
  - Reproductive tract disorder [Unknown]
  - Femur fracture [Recovered/Resolved]
  - Spinal osteoarthritis [Unknown]
  - Dyslipidaemia [Unknown]
  - Uterine disorder [Unknown]
  - Calcium deficiency [Unknown]
  - Muscular weakness [Unknown]
  - Osteoporosis [Not Recovered/Not Resolved]
  - Cardiac failure congestive [Recovering/Resolving]
  - Fluid overload [Recovering/Resolving]
  - Contusion [Unknown]
  - Micturition urgency [Unknown]
  - Gout [Unknown]
  - Scoliosis [Unknown]
  - Memory impairment [Unknown]
  - Arthritis [Unknown]
  - Neuropathy peripheral [Unknown]
  - Anxiety [Unknown]
  - Cataract [Unknown]
  - General physical health deterioration [Unknown]
  - Spinal osteoarthritis [Unknown]
  - Back disorder [Unknown]
  - Blood pressure decreased [Recovering/Resolving]
  - Myalgia [Unknown]
  - Low turnover osteopathy [Not Recovered/Not Resolved]
  - Fall [Unknown]
  - Ear disorder [Unknown]
  - Clavicle fracture [Unknown]
  - Joint range of motion decreased [Unknown]
  - Normochromic normocytic anaemia [Not Recovered/Not Resolved]
  - Intermittent claudication [Unknown]
  - Nocturia [Unknown]
  - Appendix disorder [Unknown]
  - Cardiac failure congestive [Unknown]
  - Cardiac murmur [Unknown]
  - Back pain [Unknown]
  - Polyarthritis [Unknown]
  - Muscle spasms [Unknown]
  - Gastrooesophageal reflux disease [Unknown]
  - Deafness [Unknown]
  - Vitamin D deficiency [Unknown]
  - Cataract [Unknown]
  - Peripheral vascular disorder [Unknown]
  - Rib fracture [Unknown]
  - Urinary incontinence [Unknown]
  - Constipation [Unknown]
  - Spinal operation [Unknown]
  - Sinus arrhythmia [Unknown]
  - Essential hypertension [Unknown]
  - Femur fracture [Recovering/Resolving]
  - QRS axis abnormal [Unknown]
  - Left ventricular hypertrophy [Unknown]
  - Spinal compression fracture [Unknown]
  - Aortic stenosis [Unknown]
  - Major depression [Unknown]
  - Back pain [Not Recovered/Not Resolved]

NARRATIVE: CASE EVENT DATE: 2010
